FAERS Safety Report 13226698 (Version 4)
Quarter: 2017Q4

REPORT INFORMATION
  Report Type: Report from Study
  Country: US (occurrence: US)
  Receive Date: 20170213
  Receipt Date: 20171127
  Transmission Date: 20180320
  Serious: Yes (Hospitalization)
  Sender: FDA-Public Use
  Company Number: US-JNJFOC-20170119545

PATIENT
  Age: 74 Year
  Sex: Female

DRUGS (17)
  1. IMDUR [Concomitant]
     Active Substance: ISOSORBIDE MONONITRATE
  2. PRILOSEC [Concomitant]
     Active Substance: OMEPRAZOLE MAGNESIUM
  3. IMBRUVICA [Suspect]
     Active Substance: IBRUTINIB
     Indication: WALDENSTROM^S MACROGLOBULINAEMIA
     Route: 048
     Dates: start: 20170608
  4. LORAZEMED [Concomitant]
  5. AMBIEN [Concomitant]
     Active Substance: ZOLPIDEM TARTRATE
  6. COLACE [Concomitant]
     Active Substance: DOCUSATE SODIUM
  7. COREG [Concomitant]
     Active Substance: CARVEDILOL
  8. NITROGLYCERIN. [Concomitant]
     Active Substance: NITROGLYCERIN
  9. CLOBETASOL [Concomitant]
     Active Substance: CLOBETASOL
  10. AUGMENTIN [Concomitant]
     Active Substance: AMOXICILLIN\CLAVULANATE POTASSIUM
  11. ASPIRIN 81 [Concomitant]
     Active Substance: ASPIRIN
  12. MELATONIN [Concomitant]
     Active Substance: MELATONIN
  13. LATANOPROST. [Concomitant]
     Active Substance: LATANOPROST
  14. IMBRUVICA [Suspect]
     Active Substance: IBRUTINIB
     Indication: WALDENSTROM^S MACROGLOBULINAEMIA
     Route: 048
     Dates: start: 20170113, end: 20170115
  15. ONDANSETRON [Concomitant]
     Active Substance: ONDANSETRON
  16. ATIVAN [Concomitant]
     Active Substance: LORAZEPAM
  17. PRAVASTATIN. [Concomitant]
     Active Substance: PRAVASTATIN

REACTIONS (12)
  - Hiatus hernia [Unknown]
  - Abdominal discomfort [Unknown]
  - Constipation [Unknown]
  - Gingival bleeding [Unknown]
  - Night sweats [Unknown]
  - Melaena [Recovering/Resolving]
  - Dyspepsia [Unknown]
  - Dizziness [Unknown]
  - Headache [Unknown]
  - Gastritis [Unknown]
  - Pneumonia [Unknown]
  - Nausea [Unknown]

NARRATIVE: CASE EVENT DATE: 20170113
